FAERS Safety Report 11176701 (Version 1)
Quarter: 2015Q2

REPORT INFORMATION
  Report Type: Spontaneous
  Country: US (occurrence: None)
  Receive Date: 20150609
  Receipt Date: 20150609
  Transmission Date: 20150821
  Serious: Yes (Life-Threatening, Hospitalization, Disabling, Other)
  Sender: FDA-Public Use
  Company Number: None

PATIENT
  Age: 61 Year
  Sex: Female
  Weight: 82.56 kg

DRUGS (1)
  1. LOTRONEX [Suspect]
     Active Substance: ALOSETRON HYDROCHLORIDE
     Indication: IRRITABLE BOWEL SYNDROME
     Route: 048
     Dates: start: 20150101, end: 20150601

REACTIONS (7)
  - Delirium [None]
  - Hypoxia [None]
  - Confusional state [None]
  - Large intestine perforation [None]
  - Septic shock [None]
  - Peritonitis [None]
  - Ulcer [None]

NARRATIVE: CASE EVENT DATE: 20150606
